FAERS Safety Report 6558052-9 (Version None)
Quarter: 2010Q1

REPORT INFORMATION
  Report Type: 
  Country: None (occurrence: None)
  Receive Date: 20100127
  Receipt Date: 20100127
  Transmission Date: 20100710
  Serious: No
  Sender: FDA-Public Use
  Company Number: None

PATIENT
  Sex: Female

DRUGS (1)
  1. CLOZAPINE [Suspect]
     Dosage: 100MG 1HS PO
     Route: 048
     Dates: start: 20091215, end: 20100121

REACTIONS (1)
  - BLOOD GLUCOSE INCREASED [None]
